FAERS Safety Report 21509282 (Version 2)
Quarter: 2022Q4

REPORT INFORMATION
  Report Type: Spontaneous
  Country: CN (occurrence: CN)
  Receive Date: 20221026
  Receipt Date: 20221115
  Transmission Date: 20230113
  Serious: Yes (Death, Hospitalization, Other)
  Sender: FDA-Public Use
  Company Number: CN-BEIGENE AUS PTY LTD-BGN-2022-009036

PATIENT
  Age: 43 Year
  Sex: Male
  Weight: 50 kg

DRUGS (5)
  1. LENALIDOMIDE [Suspect]
     Active Substance: LENALIDOMIDE
     Indication: Diffuse large B-cell lymphoma
     Dosage: LAST DOSE: 20-JUL-2022
     Route: 048
     Dates: start: 20220630, end: 20220722
  2. ZANUBRUTINIB [Suspect]
     Active Substance: ZANUBRUTINIB
     Indication: Diffuse large B-cell lymphoma stage III
     Dosage: 160 MILLIGRAM, BID (320MG)?LAST DOSE: 28-AUG-2022
     Route: 048
     Dates: start: 20220630, end: 20220828
  3. COMPOUND LIQUORICE [Concomitant]
     Indication: Cough
     Route: 065
     Dates: start: 20220806, end: 20220814
  4. CARBOCYSTEINE [Concomitant]
     Active Substance: CARBOCYSTEINE
     Indication: Cough
     Route: 065
     Dates: start: 20220806, end: 20220812
  5. DOXOFYLLINE [Concomitant]
     Active Substance: DOXOFYLLINE
     Indication: Cough
     Route: 065
     Dates: start: 20220806, end: 20220814

REACTIONS (10)
  - Pneumonia [Fatal]
  - Erectile dysfunction [Unknown]
  - Malignant neoplasm progression [Unknown]
  - Nausea [Unknown]
  - Rash [Unknown]
  - Skin exfoliation [Unknown]
  - Cough [Recovering/Resolving]
  - Fatigue [Recovering/Resolving]
  - C-reactive protein increased [Unknown]
  - Intentional product use issue [Unknown]

NARRATIVE: CASE EVENT DATE: 20220714
